FAERS Safety Report 9171745 (Version 1)
Quarter: 2013Q1

REPORT INFORMATION
  Report Type: Spontaneous
  Country: DE (occurrence: None)
  Receive Date: 20130128
  Receipt Date: 20130128
  Transmission Date: 20140127
  Serious: Yes (Other)
  Sender: FDA-Public Use
  Company Number: LIT-002-13-DE

PATIENT
  Age: 72 Year
  Sex: Female

DRUGS (5)
  1. HUMAN COAGULATION FACTOR VIII/VON WILLEBRAND FACTOR COMPLEX [Suspect]
     Indication: ACQUIRED HAEMOPHILIA
  2. RECOMBINANT COAGULATION FACTOR VIIA [Suspect]
     Indication: ACQUIRED HAEMOPHILIA
  3. ANTIHEMOPHILIC FACTOR HUMAN\VON WILLEBRAND FACTOR HUMAN [Suspect]
     Indication: ACQUIRED HAEMOPHILIA
  4. PREDNISOLONE [Concomitant]
  5. PROCOAGULANTS [Concomitant]

REACTIONS (4)
  - Bronchial obstruction [None]
  - Endotracheal intubation complication [None]
  - Thrombosis in device [None]
  - Thrombosis [None]
